FAERS Safety Report 11029191 (Version 2)
Quarter: 2015Q2

REPORT INFORMATION
  Report Type: Spontaneous
  Country: US (occurrence: US)
  Receive Date: 20150415
  Receipt Date: 20150526
  Transmission Date: 20150821
  Serious: No
  Sender: FDA-Public Use
  Company Number: US-JNJFOC-20141007471

PATIENT
  Sex: Male
  Weight: 72.58 kg

DRUGS (1)
  1. PREZISTA [Suspect]
     Active Substance: DARUNAVIR ETHANOLATE
     Indication: PRODUCT USED FOR UNKNOWN INDICATION
     Route: 048
     Dates: start: 201408, end: 201409

REACTIONS (2)
  - Viral load increased [Unknown]
  - Drug resistance [Unknown]

NARRATIVE: CASE EVENT DATE: 201408
